FAERS Safety Report 8495055-1 (Version None)
Quarter: 2012Q3

REPORT INFORMATION
  Report Type: 
  Country: None (occurrence: None)
  Receive Date: 20120709
  Receipt Date: 20120704
  Transmission Date: 20120928
  Serious: Yes (Other)
  Sender: FDA-Public Use
  Company Number: PHHY2012DE058074

PATIENT
  Sex: Female

DRUGS (2)
  1. METHYLDOPA [Concomitant]
     Route: 048
  2. PROVAS MAXX [Suspect]
     Dosage: 1 DF, QD
     Route: 048
     Dates: start: 20070101

REACTIONS (2)
  - ABORTION [None]
  - MATERNAL EXPOSURE DURING PREGNANCY [None]
